FAERS Safety Report 15958473 (Version 2)
Quarter: 2019Q1

REPORT INFORMATION
  Report Type: Spontaneous
  Country: TW (occurrence: TW)
  Receive Date: 20190213
  Receipt Date: 20190228
  Transmission Date: 20190417
  Serious: Yes (Other)
  Sender: FDA-Public Use
  Company Number: TW-WHANIN PHARM. CO., LTD.-2019M1013748

PATIENT
  Age: 35 Year
  Sex: Female

DRUGS (8)
  1. CLOZAPINE. [Interacting]
     Active Substance: CLOZAPINE
     Indication: SCHIZOAFFECTIVE DISORDER
     Dosage: 50 MILLIGRAM, QD
  2. BUPROPION. [Interacting]
     Active Substance: BUPROPION
     Dosage: 150 MILLIGRAM
  3. LITHIUM. [Concomitant]
     Active Substance: LITHIUM
     Indication: SCHIZOAFFECTIVE DISORDER
     Dosage: 600 MILLIGRAM, QD
  4. GLYCOPYRROLATE                     /00196201/ [Concomitant]
     Active Substance: GLYCOPYRRONIUM
     Indication: SCHIZOAFFECTIVE DISORDER
     Dosage: 2 MILLIGRAM, QD
  5. CLOZAPINE. [Interacting]
     Active Substance: CLOZAPINE
     Dosage: 100 MILLIGRAM, QD
     Dates: start: 201608, end: 201608
  6. CLOZAPINE. [Interacting]
     Active Substance: CLOZAPINE
     Dosage: 100 MILLIGRAM, QD
  7. ESTAZOLAM. [Concomitant]
     Active Substance: ESTAZOLAM
     Indication: SCHIZOAFFECTIVE DISORDER
     Dosage: 2 MILLIGRAM, QD
  8. BUPROPION. [Suspect]
     Active Substance: BUPROPION
     Indication: MAJOR DEPRESSION
     Dosage: 150 MILLIGRAM, QD
     Dates: start: 201608, end: 201608

REACTIONS (2)
  - Generalised tonic-clonic seizure [Not Recovered/Not Resolved]
  - Drug interaction [Unknown]

NARRATIVE: CASE EVENT DATE: 201608
